FAERS Safety Report 8286416-4 (Version None)
Quarter: 2012Q2

REPORT INFORMATION
  Report Type: 
  Country: None (occurrence: None)
  Receive Date: 20120411
  Receipt Date: 20120411
  Transmission Date: 20120825
  Serious: Yes (Death)
  Sender: FDA-Public Use
  Company Number: None

PATIENT
  Sex: Male
  Weight: 71.2147 kg

DRUGS (1)
  1. PRADAXA [Suspect]
     Indication: ATRIAL FIBRILLATION
     Dosage: 150 MG 2X DAY ORAL
     Route: 048
     Dates: start: 20110118, end: 20110426

REACTIONS (14)
  - HEART RATE INCREASED [None]
  - HAEMORRHAGE [None]
  - DYSPNOEA [None]
  - OEDEMA PERIPHERAL [None]
  - EPISTAXIS [None]
  - FLATULENCE [None]
  - ABDOMINAL DISTENSION [None]
  - DIARRHOEA [None]
  - DECREASED APPETITE [None]
  - GASTROOESOPHAGEAL REFLUX DISEASE [None]
  - FEELING COLD [None]
  - FATIGUE [None]
  - ABDOMINAL PAIN UPPER [None]
  - EARLY SATIETY [None]
